FAERS Safety Report 9820318 (Version 1)
Quarter: 2014Q1

REPORT INFORMATION
  Report Type: Spontaneous
  Country: US (occurrence: None)
  Receive Date: 20140114
  Receipt Date: 20140114
  Transmission Date: 20141002
  Serious: Yes (Death)
  Sender: FDA-Public Use
  Company Number: None

PATIENT
  Age: 63 Year
  Sex: Male
  Weight: 77.11 kg

DRUGS (1)
  1. STIVARGA [Suspect]

REACTIONS (4)
  - Blood pressure increased [None]
  - Dyspepsia [None]
  - Cardiac arrest [None]
  - Sudden death [None]
